FAERS Safety Report 7341375-3 (Version None)
Quarter: 2011Q1

REPORT INFORMATION
  Report Type: 
  Country: None (occurrence: None)
  Receive Date: 20110309
  Receipt Date: 20100914
  Transmission Date: 20110831
  Serious: Yes (Hospitalization, Other)
  Sender: FDA-Public Use
  Company Number: US-BAYER-201025757NA

PATIENT
  Sex: Female
  Weight: 85.261 kg

DRUGS (6)
  1. PROTONIX [Concomitant]
     Dosage: UNK
     Route: 048
     Dates: start: 19980101
  2. YAZ [Suspect]
     Indication: PREMENSTRUAL SYNDROME
     Dosage: UNK UNK, UNK
     Route: 048
     Dates: start: 20080101, end: 20080602
  3. CARTIA XT [Concomitant]
     Dosage: 1 DF, QD
     Route: 048
     Dates: start: 20040101
  4. YAZ [Suspect]
     Indication: MENSTRUATION IRREGULAR
  5. YASMIN [Suspect]
     Indication: PRODUCT USED FOR UNKNOWN INDICATION
     Route: 048
  6. TRIAMTERENE [Concomitant]
     Dosage: 1 DF, QD
     Route: 048
     Dates: start: 19980101

REACTIONS (6)
  - SPEECH REHABILITATION [None]
  - HEADACHE [None]
  - PAIN [None]
  - VERTIGO [None]
  - ISCHAEMIC CEREBRAL INFARCTION [None]
  - MENTAL STATUS CHANGES [None]
